FAERS Safety Report 4797321-X (Version None)
Quarter: 2005Q4

REPORT INFORMATION
  Report Type: 
  Country: None (occurrence: None)
  Receive Date: 20051011
  Receipt Date: 20051011
  Transmission Date: 20060501
  Serious: Yes (Other)
  Sender: FDA-Public Use
  Company Number: None

PATIENT
  Age: 75 Year
  Sex: Female
  Weight: 71.6683 kg

DRUGS (17)
  1. LOVENOX [Suspect]
     Indication: AORTIC VALVE DISEASE
     Dosage: 60MG, BID, SQ
     Route: 058
     Dates: start: 20050918
  2. LOVENOX [Suspect]
     Indication: AORTIC VALVE DISEASE
     Dosage: 60MG, BID, SQ
     Route: 058
     Dates: start: 20050923
  3. RANITIDINE [Concomitant]
  4. HYDROCODONE BITARTRATE + ACETAMINOPHEN [Concomitant]
  5. LEVOTHROID [Concomitant]
  6. OMEPRAZOLE [Concomitant]
  7. NORTRIPTYLINE HCL [Concomitant]
  8. FLUOXETINE [Concomitant]
  9. AMIDRINE [Concomitant]
  10. WARFARIN SODIUM [Concomitant]
  11. .. [Concomitant]
  12. CIPROFLOXACIN [Concomitant]
  13. IRON DEXTRAN [Concomitant]
  14. DIPHENHYDRAMINE HCL [Concomitant]
  15. ACETAMINOPHEN [Concomitant]
  16. VERAPAMIL HCL [Concomitant]
  17. ESTRACE VAGINAL [Concomitant]

REACTIONS (4)
  - DIARRHOEA [None]
  - INJECTION SITE DISCOLOURATION [None]
  - INJECTION SITE ERYTHEMA [None]
  - INJECTION SITE HAEMORRHAGE [None]
